FAERS Safety Report 23362081 (Version 1)
Quarter: 2024Q1

REPORT INFORMATION
  Report Type: Spontaneous
  Country: US (occurrence: US)
  Receive Date: 20240103
  Receipt Date: 20240103
  Transmission Date: 20240409
  Serious: No
  Sender: FDA-Public Use
  Company Number: US-PFIZER INC-PV202300207269

PATIENT
  Sex: Female

DRUGS (1)
  1. PRISTIQ EXTENDED-RELEASE [Suspect]
     Active Substance: DESVENLAFAXINE SUCCINATE
     Dosage: 50 MG PILL AND ANOTHER 50 MG PILL THAT YOU CUT IN HALF 1.5 45QTS 1.5DS

REACTIONS (3)
  - Intentional product misuse [Unknown]
  - Vertigo [Unknown]
  - Dizziness [Unknown]
